FAERS Safety Report 20314926 (Version 1)
Quarter: 2022Q1

REPORT INFORMATION
  Report Type: Spontaneous
  Country: US (occurrence: US)
  Receive Date: 20220110
  Receipt Date: 20220110
  Transmission Date: 20220423
  Serious: No
  Sender: FDA-Public Use
  Company Number: US-PFIZER INC-202101830942

PATIENT
  Age: 26 Year
  Sex: Female
  Weight: 44.91 kg

DRUGS (3)
  1. DEPO-PROVERA [Suspect]
     Active Substance: MEDROXYPROGESTERONE ACETATE
     Indication: Contraception
     Dosage: 150MG/ML-1ML, INJECTION TO THE BUTTOCKS
     Route: 030
     Dates: start: 20211011
  2. ATIVAN [Concomitant]
     Active Substance: LORAZEPAM
     Indication: Anxiety
     Dosage: 1- 0.5MG, 3X/DAY
     Dates: start: 20211104, end: 2021
  3. TEGRETOL [Concomitant]
     Active Substance: CARBAMAZEPINE
     Indication: Anxiety
     Dosage: 200 MG, 2X/DAY
     Dates: start: 20211104, end: 2021

REACTIONS (2)
  - Vaginal haemorrhage [Not Recovered/Not Resolved]
  - Vaginal haemorrhage [Not Recovered/Not Resolved]

NARRATIVE: CASE EVENT DATE: 20210101
